APPROVED DRUG PRODUCT: ABACAVIR SULFATE
Active Ingredient: ABACAVIR SULFATE
Strength: EQ 300MG BASE
Dosage Form/Route: TABLET;ORAL
Application: A201570 | Product #001
Applicant: APOTEX INC
Approved: Dec 17, 2012 | RLD: No | RS: No | Type: DISCN